FAERS Safety Report 14303116 (Version 3)
Quarter: 2018Q1

REPORT INFORMATION
  Report Type: Spontaneous
  Country: JP (occurrence: JP)
  Receive Date: 20171219
  Receipt Date: 20180220
  Transmission Date: 20180509
  Serious: Yes (Death)
  Sender: FDA-Public Use
  Company Number: JP-JT-EVA201701699KERYXP-002

PATIENT
  Age: 72 Year
  Sex: Male
  Weight: 49 kg

DRUGS (11)
  1. RIONA [Suspect]
     Active Substance: FERRIC CITRATE ANHYDROUS
     Indication: HYPERPHOSPHATAEMIA
     Dosage: 250 MG, TID
     Route: 048
     Dates: start: 20150310, end: 20160317
  2. NESP [Concomitant]
     Active Substance: DARBEPOETIN ALFA
     Dosage: 10 MICRO-G, UNK
     Route: 042
  3. GASTER [Concomitant]
     Active Substance: FAMOTIDINE
     Indication: HYPERCHLORHYDRIA
     Dosage: 10 MG, QD
     Route: 048
     Dates: end: 20160316
  4. NESP [Concomitant]
     Active Substance: DARBEPOETIN ALFA
     Dosage: 10 MICRO-G, UNK
     Route: 042
  5. URIEF [Concomitant]
     Active Substance: SILODOSIN
     Dosage: 8 MG, QD
     Route: 048
     Dates: end: 20160327
  6. FESIN [Concomitant]
     Active Substance: IRON SUCROSE
     Indication: MINERAL SUPPLEMENTATION
     Dosage: 40 MG, UNK
     Route: 042
  7. CALCITRIOL. [Concomitant]
     Active Substance: CALCITRIOL
     Indication: HYPERPARATHYROIDISM SECONDARY
     Dosage: 0.25 MICRO-G, QD
     Route: 048
     Dates: end: 20160310
  8. NESP [Concomitant]
     Active Substance: DARBEPOETIN ALFA
     Indication: NEPHROGENIC ANAEMIA
     Dosage: 5 MICRO-G, UNK
     Route: 042
  9. NEXIUM [Concomitant]
     Active Substance: ESOMEPRAZOLE MAGNESIUM
     Indication: HYPERCHLORHYDRIA
     Dosage: 20 MG, QD
     Route: 048
     Dates: start: 20160317, end: 20160327
  10. MICARDIS [Concomitant]
     Active Substance: TELMISARTAN
     Dosage: 40 MG, QD
     Route: 048
     Dates: end: 20150728
  11. KAYEXALATE [Concomitant]
     Active Substance: SODIUM POLYSTYRENE SULFONATE
     Dosage: 6.54 G, QD
     Route: 048
     Dates: end: 20160315

REACTIONS (1)
  - Pneumonia [Fatal]

NARRATIVE: CASE EVENT DATE: 20160317
